FAERS Safety Report 10641667 (Version 1)
Quarter: 2014Q4

REPORT INFORMATION
  Report Type: Spontaneous
  Country: US (occurrence: US)
  Receive Date: 20141209
  Receipt Date: 20141209
  Transmission Date: 20150529
  Serious: Yes (Other)
  Sender: FDA-Public Use
  Company Number: US-JNJFOC-20141202547

PATIENT
  Sex: Male

DRUGS (3)
  1. INVEGA [Suspect]
     Active Substance: PALIPERIDONE
     Indication: MALAISE
     Route: 048
  2. INVEGA [Suspect]
     Active Substance: PALIPERIDONE
     Indication: MALAISE
     Route: 048
  3. INVEGA [Suspect]
     Active Substance: PALIPERIDONE
     Indication: MALAISE
     Route: 048

REACTIONS (9)
  - Tremor [Unknown]
  - Product use issue [Unknown]
  - Self injurious behaviour [Recovered/Resolved]
  - Therapeutic response increased [Not Recovered/Not Resolved]
  - Coeliac disease [Not Recovered/Not Resolved]
  - Infection [Not Recovered/Not Resolved]
  - Therapy cessation [Unknown]
  - Drug dependence [Not Recovered/Not Resolved]
  - Insomnia [Unknown]
